FAERS Safety Report 21703755 (Version 3)
Quarter: 2023Q2

REPORT INFORMATION
  Report Type: Report from Study
  Country: US (occurrence: US)
  Receive Date: 20221209
  Receipt Date: 20230621
  Transmission Date: 20230721
  Serious: Yes (Other)
  Sender: FDA-Public Use
  Company Number: US-ABBVIE-4229511

PATIENT
  Age: 41 Year
  Sex: Female

DRUGS (2)
  1. RINVOQ [Suspect]
     Active Substance: UPADACITINIB
     Indication: Rheumatoid arthritis
     Route: 048
     Dates: start: 20221207
  2. RINVOQ [Suspect]
     Active Substance: UPADACITINIB
     Indication: Rheumatoid arthritis
     Dosage: DISCONTINUED IN NOV 2022
     Route: 048
     Dates: start: 20221118

REACTIONS (6)
  - Spinal fusion surgery [Recovering/Resolving]
  - Osteitis [Unknown]
  - Fibromyalgia [Not Recovered/Not Resolved]
  - Alopecia [Unknown]
  - Herpes zoster [Recovering/Resolving]
  - Rib fracture [Recovering/Resolving]

NARRATIVE: CASE EVENT DATE: 20221123
